FAERS Safety Report 4270839-4 (Version None)
Quarter: 2004Q1

REPORT INFORMATION
  Report Type: 
  Country: None (occurrence: None)
  Receive Date: 20040113
  Receipt Date: 20040107
  Transmission Date: 20041129
  Serious: Yes (Death)
  Sender: FDA-Public Use
  Company Number: 200410085BCC

PATIENT
  Sex: Female

DRUGS (1)
  1. ALKA SELTZER PLUS COLD EFFERVESCENT [Suspect]
     Indication: HEADACHE
     Dosage: ORAL
     Route: 048

REACTIONS (1)
  - CEREBRAL THROMBOSIS [None]
